FAERS Safety Report 5833422-2 (Version None)
Quarter: 2008Q3

REPORT INFORMATION
  Report Type: 
  Country: None (occurrence: None)
  Receive Date: 20080804
  Receipt Date: 20080804
  Transmission Date: 20090109
  Serious: Yes (Other)
  Sender: FDA-Public Use
  Company Number: None

PATIENT
  Sex: Female
  Weight: 53.5244 kg

DRUGS (1)
  1. ALENDRONATE SODIUM [Suspect]

REACTIONS (9)
  - INCONTINENCE [None]
  - LIP BLISTER [None]
  - MUSCULOSKELETAL PAIN [None]
  - PAIN IN EXTREMITY [None]
  - PAIN IN JAW [None]
  - POLLAKIURIA [None]
  - SCAB [None]
  - STOMATITIS [None]
  - TOOTHACHE [None]
